FAERS Safety Report 7622564-7 (Version None)
Quarter: 2011Q3

REPORT INFORMATION
  Report Type: 
  Country: None (occurrence: None)
  Receive Date: 20110712
  Receipt Date: 20110627
  Transmission Date: 20111222
  Serious: Yes (Life-Threatening, Other)
  Sender: FDA-Public Use
  Company Number: ERD2011A00235

PATIENT
  Age: 61 Year
  Sex: Male

DRUGS (10)
  1. HALOPERIDOL [Concomitant]
  2. ESCITALOPRAM [Concomitant]
  3. FENOFIBRATE [Concomitant]
  4. SINVASTATIN (SIMVASTATIN) [Concomitant]
  5. PERINDOPRIL ERBUMINE [Concomitant]
  6. IRBESARTAN/HYDROCHLOROTHIAZIDE (HYDROCHLOROTHIAZIDE, IRBESARTAN) [Concomitant]
  7. SULPIRIDE (SULPIRIDE) [Concomitant]
  8. MEXAZOLAM (MEXAZOLAM) [Concomitant]
  9. PIOGLITAZONE HYDROCHLORIDE/METFROMIN HYDROCHLORIDE [Suspect]
     Indication: TYPE 2 DIABETES MELLITUS
     Dosage: 15 MG / 850 MG (2 IN 1 D) ORAL
     Route: 048
  10. NEBIVOLOL HCL [Concomitant]

REACTIONS (1)
  - BLADDER ADENOCARCINOMA STAGE UNSPECIFIED [None]
